FAERS Safety Report 11866171 (Version 2)
Quarter: 2017Q1

REPORT INFORMATION
  Report Type: Report from Study
  Country: US (occurrence: US)
  Receive Date: 20151223
  Receipt Date: 20170201
  Transmission Date: 20170428
  Serious: No
  Sender: FDA-Public Use
  Company Number: US-EXELIXIS-CABO-15005740

PATIENT
  Sex: Female

DRUGS (2)
  1. COMETRIQ [Suspect]
     Active Substance: CABOZANTINIB S-MALATE
     Indication: THYROID CANCER
     Dosage: 140 MG, QD
     Route: 048
     Dates: start: 201507, end: 20150722
  2. COMETRIQ [Suspect]
     Active Substance: CABOZANTINIB S-MALATE
     Dosage: 120 MG, QD
     Route: 048
     Dates: start: 201510, end: 201601

REACTIONS (6)
  - Hair colour changes [Unknown]
  - Palmar-plantar erythrodysaesthesia syndrome [Unknown]
  - Adverse drug reaction [Unknown]
  - Anorectal disorder [Unknown]
  - Diarrhoea [Unknown]
  - Pain [Unknown]
